FAERS Safety Report 7091171-X (Version None)
Quarter: 2010Q4

REPORT INFORMATION
  Report Type: 
  Country: None (occurrence: None)
  Receive Date: 20101109
  Receipt Date: 20101104
  Transmission Date: 20110411
  Serious: Yes (Hospitalization)
  Sender: FDA-Public Use
  Company Number: FR-SANOFI-AVENTIS-2010SA051484

PATIENT
  Age: 77 Year
  Sex: Female

DRUGS (4)
  1. LASIX [Suspect]
     Route: 042
     Dates: start: 20100811, end: 20100816
  2. ROCEPHIN [Concomitant]
     Route: 051
     Dates: start: 20100811
  3. TAVANIC [Concomitant]
     Route: 065
     Dates: start: 20100811, end: 20100816
  4. CIFLOX [Concomitant]
     Route: 065
     Dates: start: 20100816, end: 20100817

REACTIONS (1)
  - RENAL FAILURE [None]
